FAERS Safety Report 12193857 (Version 1)
Quarter: 2016Q1

REPORT INFORMATION
  Report Type: Spontaneous
  Country: NO (occurrence: NO)
  Receive Date: 20160321
  Receipt Date: 20160321
  Transmission Date: 20160526
  Serious: Yes (Other)
  Sender: FDA-Public Use
  Company Number: NO-HOSPIRA-3211424

PATIENT
  Age: 51 Year
  Sex: Female

DRUGS (8)
  1. CARBOPLATIN. [Suspect]
     Active Substance: CARBOPLATIN
     Indication: LUNG ADENOCARCINOMA
     Dosage: 3 TREATMENTS
     Dates: start: 201111
  2. GEFITINIB [Suspect]
     Active Substance: GEFITINIB
     Indication: LUNG ADENOCARCINOMA
     Dosage: UNK
     Dates: start: 20120130
  3. AFATINIB [Suspect]
     Active Substance: AFATINIB
     Indication: LUNG ADENOCARCINOMA
     Dates: start: 20150427
  4. VINORELBINE TARTRATE. [Suspect]
     Active Substance: VINORELBINE TARTRATE
     Indication: LUNG ADENOCARCINOMA
     Dosage: 3 TREATMENTS
     Dates: start: 201111
  5. GEFITINIB [Suspect]
     Active Substance: GEFITINIB
     Indication: LUNG ADENOCARCINOMA
     Dosage: UNK
     Dates: start: 2013
  6. GEFITINIB [Suspect]
     Active Substance: GEFITINIB
     Indication: LUNG ADENOCARCINOMA
     Dosage: UNK
     Dates: start: 2014
  7. PEMETREXED [Suspect]
     Active Substance: PEMETREXED
     Indication: LUNG ADENOCARCINOMA
     Dosage: 5 TREATMENTS
     Dates: start: 20141128
  8. AFATINIB [Suspect]
     Active Substance: AFATINIB
     Indication: LUNG ADENOCARCINOMA
     Dates: start: 20150408

REACTIONS (11)
  - Diarrhoea [Unknown]
  - Hyperplasia [Unknown]
  - Disease recurrence [Unknown]
  - Disease progression [Unknown]
  - Drug intolerance [Unknown]
  - Chest pain [Unknown]
  - Blood creatinine increased [Unknown]
  - Mouth ulceration [Unknown]
  - Onychoclasis [Unknown]
  - Gene mutation [Unknown]
  - Flatulence [Unknown]

NARRATIVE: CASE EVENT DATE: 201304
